FAERS Safety Report 20524098 (Version 1)
Quarter: 2022Q1

REPORT INFORMATION
  Report Type: Report from Study
  Country: US (occurrence: US)
  Receive Date: 20220228
  Receipt Date: 20220228
  Transmission Date: 20220423
  Serious: No
  Sender: FDA-Public Use
  Company Number: US-HRARD-2021000232

PATIENT
  Age: 13 Year
  Sex: Male

DRUGS (5)
  1. METOPIRONE [Suspect]
     Active Substance: METYRAPONE
     Dosage: 500 MG BIS (EVERY 12 HOURS)
     Route: 048
     Dates: start: 20210212
  2. METOPIRONE [Suspect]
     Active Substance: METYRAPONE
     Dosage: 6 CAPSULES PER DAY
     Route: 048
  3. SPIRONOLACTONE [Concomitant]
     Active Substance: SPIRONOLACTONE
  4. KETOCONAZOLE [Concomitant]
     Active Substance: KETOCONAZOLE
  5. Multivitamin chw [Concomitant]

REACTIONS (5)
  - Blood pressure increased [Not Recovered/Not Resolved]
  - Fatigue [Not Recovered/Not Resolved]
  - Nausea [Not Recovered/Not Resolved]
  - Dizziness [Not Recovered/Not Resolved]
  - Off label use [Not Recovered/Not Resolved]

NARRATIVE: CASE EVENT DATE: 20210212
